FAERS Safety Report 9263132 (Version 1)
Quarter: 2013Q2

REPORT INFORMATION
  Report Type: Spontaneous
  Country: US (occurrence: None)
  Receive Date: 20130426
  Receipt Date: 20130426
  Transmission Date: 20140414
  Serious: Yes (Other)
  Sender: FDA-Public Use
  Company Number: None

PATIENT
  Age: 60 Year
  Sex: Female
  Weight: 108.86 kg

DRUGS (1)
  1. ENOXAPARIN [Suspect]
     Indication: EMBOLISM VENOUS
     Route: 058
     Dates: start: 20130323, end: 20130323

REACTIONS (4)
  - Injection site haematoma [None]
  - Contusion [None]
  - Restlessness [None]
  - Agitation [None]
